FAERS Safety Report 13399634 (Version 1)
Quarter: 2017Q2

REPORT INFORMATION
  Report Type: Spontaneous
  Country: US (occurrence: US)
  Receive Date: 20170404
  Receipt Date: 20170404
  Transmission Date: 20170830
  Serious: No
  Sender: FDA-Public Use
  Company Number: US-BRISTOL-MYERS SQUIBB COMPANY-BMS-2017-026431

PATIENT
  Sex: Female

DRUGS (1)
  1. SPRYCEL [Suspect]
     Active Substance: DASATINIB
     Indication: MYELOID LEUKAEMIA
     Dosage: 100 MG, QD
     Route: 048
     Dates: start: 20131029

REACTIONS (7)
  - Cough [Unknown]
  - Urticaria [Unknown]
  - Diarrhoea [Unknown]
  - Dizziness [Unknown]
  - Migraine [Unknown]
  - Dyspepsia [Unknown]
  - Asthenia [Unknown]
